FAERS Safety Report 23512981 (Version 1)
Quarter: 2024Q1

REPORT INFORMATION
  Report Type: Spontaneous
  Country: US (occurrence: US)
  Receive Date: 20240212
  Receipt Date: 20240212
  Transmission Date: 20240410
  Serious: No
  Sender: FDA-Public Use
  Company Number: US-LEADIANT BIOSCIENCES INC-2023STPI000273

PATIENT
  Age: 78 Year
  Sex: Female

DRUGS (4)
  1. CARNITOR [Suspect]
     Active Substance: LEVOCARNITINE
     Indication: Immune system disorder
     Dosage: 330 MG, 3 TABLETS (990MG  TOTAL) DAILY
     Route: 048
     Dates: start: 2013
  2. CARNITOR [Suspect]
     Active Substance: LEVOCARNITINE
     Dosage: 1 TABLET (330 MILLIGRAM  TOTAL) DAILY
     Route: 048
     Dates: start: 20230707, end: 20230710
  3. ESTRADIOL [Concomitant]
     Active Substance: ESTRADIOL
     Indication: Hormone replacement therapy
     Dosage: 0.3 MG ONCE DAILY
  4. PROGESTERONE [Concomitant]
     Active Substance: PROGESTERONE
     Indication: Hormone replacement therapy
     Dosage: 100 MG ONCE DAILY

REACTIONS (3)
  - Nausea [Recovering/Resolving]
  - Eructation [Recovering/Resolving]
  - Headache [Recovering/Resolving]

NARRATIVE: CASE EVENT DATE: 20230707
